FAERS Safety Report 23679094 (Version 1)
Quarter: 2024Q1

REPORT INFORMATION
  Report Type: Spontaneous
  Country: US (occurrence: US)
  Receive Date: 20240327
  Receipt Date: 20240327
  Transmission Date: 20240409
  Serious: Yes (Other)
  Sender: FDA-Public Use
  Company Number: US-ELI_LILLY_AND_COMPANY-US202403010300

PATIENT
  Sex: Male

DRUGS (1)
  1. HUMALOG [Suspect]
     Active Substance: INSULIN LISPRO
     Indication: Product used for unknown indication
     Dosage: UNK UNK, UNKNOWN
     Route: 065

REACTIONS (13)
  - Renal failure [Unknown]
  - Retinal artery occlusion [Unknown]
  - Cerebrovascular accident [Unknown]
  - Myocardial infarction [Unknown]
  - Herpes zoster [Unknown]
  - Neuralgia [Unknown]
  - Rash vesicular [Unknown]
  - Stress [Unknown]
  - Herpes zoster [Unknown]
  - Irritability [Unknown]
  - Gait inability [Unknown]
  - Posture abnormal [Unknown]
  - Pain [Unknown]

NARRATIVE: CASE EVENT DATE: 20040101
